FAERS Safety Report 9598348 (Version 1)
Quarter: 2013Q4

REPORT INFORMATION
  Report Type: Spontaneous
  Country: US (occurrence: US)
  Receive Date: 20131004
  Receipt Date: 20131004
  Transmission Date: 20140711
  Serious: No
  Sender: FDA-Public Use
  Company Number: US-AMGEN-USASP2013023384

PATIENT
  Age: 60 Year
  Sex: Female
  Weight: 48.53 kg

DRUGS (10)
  1. ENBREL [Suspect]
     Indication: RHEUMATOID ARTHRITIS
     Dosage: 50 MG, UNK
     Route: 058
     Dates: end: 20130330
  2. CALCIUM [Concomitant]
     Dosage: UNK
  3. ESTRADIOL [Concomitant]
     Dosage: UNK
  4. FOLIC ACID [Concomitant]
     Dosage: UNK
  5. LEVOTHYROXINE [Concomitant]
     Dosage: UNK
  6. MULTIVITAMINS, PLAIN [Concomitant]
     Dosage: UNK
  7. PROMETRIUM                         /00110701/ [Concomitant]
     Dosage: UNK
  8. SALSALATE [Concomitant]
     Dosage: UNK
  9. VITAMIN D                          /00107901/ [Concomitant]
     Dosage: UNK
  10. IMURAN                             /00001501/ [Concomitant]
     Dosage: UNK

REACTIONS (1)
  - Therapeutic response decreased [Unknown]
